FAERS Safety Report 6721768-5 (Version None)
Quarter: 2010Q2

REPORT INFORMATION
  Report Type: 
  Country: None (occurrence: None)
  Receive Date: 20100510
  Receipt Date: 20100422
  Transmission Date: 20101027
  Serious: Yes (Other)
  Sender: FDA-Public Use
  Company Number: 2010S1000085

PATIENT
  Age: 72 Year
  Sex: Male
  Weight: 96.6162 kg

DRUGS (10)
  1. PHOSPHOSODA FLAVOR NOT SPECIFIED [Suspect]
     Indication: COLONOSCOPY
     Dosage: PO
     Route: 048
     Dates: start: 20080423, end: 20080423
  2. CRESTOR [Concomitant]
  3. DIOVAN HCT [Concomitant]
  4. ALLOPURINOL [Concomitant]
  5. ASPIRIN [Concomitant]
  6. NASONEX [Concomitant]
  7. ADVAIR DISKUS 100/50 [Concomitant]
  8. PROVENTIL HFA /00139501/ [Concomitant]
  9. SINGULAIR [Concomitant]
  10. VIAGRA [Concomitant]

REACTIONS (1)
  - RENAL FAILURE CHRONIC [None]
